FAERS Safety Report 9958113 (Version 1)
Quarter: 2014Q1

REPORT INFORMATION
  Report Type: Report from Study
  Country: US (occurrence: US)
  Receive Date: 20140304
  Receipt Date: 20140304
  Transmission Date: 20141002
  Serious: No
  Sender: FDA-Public Use
  Company Number: US-ABBVIE-13P-163-1091435-00

PATIENT
  Age: 60 Year
  Sex: Female
  Weight: 93.98 kg

DRUGS (2)
  1. HUMIRA [Suspect]
     Indication: PSORIASIS
     Dates: start: 201212, end: 201212
  2. HUMIRA [Suspect]
     Dates: start: 201212

REACTIONS (5)
  - Injection site bruising [Recovered/Resolved]
  - Dry skin [Recovered/Resolved]
  - Skin exfoliation [Recovered/Resolved]
  - Injection site warmth [Recovered/Resolved]
  - Hypertension [Unknown]
